FAERS Safety Report 10348405 (Version 4)
Quarter: 2014Q4

REPORT INFORMATION
  Report Type: Spontaneous
  Country: JP (occurrence: JP)
  Receive Date: 20140729
  Receipt Date: 20141113
  Transmission Date: 20150528
  Serious: Yes (Hospitalization, Other)
  Sender: FDA-Public Use
  Company Number: JP-009507513-1407JPN011029

PATIENT
  Age: 38 Year
  Sex: Female
  Weight: 68 kg

DRUGS (9)
  1. ARICEPT [Concomitant]
     Active Substance: DONEPEZIL HYDROCHLORIDE
     Indication: MALIGNANT GLIOMA
     Dosage: 5 MG, QD
     Dates: start: 20131217, end: 20140712
  2. TEMODAL [Suspect]
     Active Substance: TEMOZOLOMIDE
     Dosage: 360 MG, QD
     Route: 048
     Dates: start: 20140617, end: 20140621
  3. CINAL [Concomitant]
     Active Substance: ASCORBIC ACID\CALCIUM PANTOTHENATE
     Dosage: 200 MG, TID
     Route: 048
     Dates: start: 20140107
  4. THYRADIN-S [Concomitant]
     Active Substance: LEVOTHYROXINE
     Indication: HYPOTHYROIDISM
     Dosage: 25 MICROGRAM, DIVIDED DOSE, FREQUENCY UNKNOWN, INTERVAL 1 DAY
     Route: 048
     Dates: start: 2007, end: 20140712
  5. MERISLON [Concomitant]
     Active Substance: BETAHISTINE MESILATE
     Dosage: 12 MG, TID
     Route: 048
     Dates: start: 20140610
  6. RIVOTRIL [Suspect]
     Active Substance: CLONAZEPAM
     Dosage: 0.5 MG, QD
     Route: 048
     Dates: start: 20140612, end: 20140712
  7. METHYCOBAL [Concomitant]
     Active Substance: METHYLCOBALAMIN
     Dosage: 500 MG, TID
     Route: 048
     Dates: start: 20140107
  8. TEMODAL [Suspect]
     Active Substance: TEMOZOLOMIDE
     Indication: MALIGNANT GLIOMA
     Dosage: DAILY DOSAGE UNKNOWN, APPROXIMATELY 12 CYCLES
     Route: 048
     Dates: start: 201111, end: 201303
  9. KEPPRA [Concomitant]
     Active Substance: LEVETIRACETAM
     Indication: MALIGNANT GLIOMA
     Dosage: 500 MG, BID
     Route: 048
     Dates: start: 20131112, end: 20140712

REACTIONS (12)
  - Haematocrit decreased [Unknown]
  - Dyskinesia [Not Recovered/Not Resolved]
  - Malignant glioma [Unknown]
  - Platelet count decreased [Recovered/Resolved]
  - Urticaria [Recovering/Resolving]
  - Platelet count decreased [Recovered/Resolved]
  - Brain tumour operation [Unknown]
  - Red blood cell count decreased [Unknown]
  - White blood cell count decreased [Unknown]
  - Thrombocytopenia [Recovered/Resolved]
  - Haemoglobin decreased [Unknown]
  - Dizziness [Not Recovered/Not Resolved]

NARRATIVE: CASE EVENT DATE: 20111115
